FAERS Safety Report 8879553 (Version 1)
Quarter: 2012Q4

REPORT INFORMATION
  Report Type: 
  Country: JP (occurrence: JP)
  Receive Date: 20121101
  Receipt Date: 20121101
  Transmission Date: 20130627
  Serious: Yes (Other)
  Sender: FDA-Public Use
  Company Number: JP-ASTELLAS-2012JP010178

PATIENT
  Age: 40 Year
  Sex: Female
  Weight: 55 kg

DRUGS (5)
  1. PROGRAF [Suspect]
     Indication: JUVENILE ARTHRITIS
     Route: 065
  2. FOLIC ACID [Concomitant]
     Route: 065
  3. DICLOFENAC SODIUM [Concomitant]
     Route: 065
  4. BUCILLAMINE [Concomitant]
     Indication: JUVENILE ARTHRITIS
     Route: 065
  5. PREDNISOLONE [Concomitant]
     Indication: JUVENILE ARTHRITIS
     Route: 065

REACTIONS (2)
  - Drug ineffective for unapproved indication [Unknown]
  - Juvenile idiopathic arthritis [Unknown]
